FAERS Safety Report 13466706 (Version 2)
Quarter: 2017Q3

REPORT INFORMATION
  Report Type: Spontaneous
  Country: FR (occurrence: FR)
  Receive Date: 20170421
  Receipt Date: 20170711
  Transmission Date: 20171127
  Serious: Yes (Other)
  Sender: FDA-Public Use
  Company Number: FR-ROCHE-1922619

PATIENT
  Age: 18 Year
  Sex: Female

DRUGS (5)
  1. NOZINAN [Suspect]
     Active Substance: LEVOMEPROMAZINE
     Indication: DEPRESSION
     Route: 065
  2. FLUOXETINE ARROW [Suspect]
     Active Substance: FLUOXETINE HYDROCHLORIDE
     Indication: DEPRESSION
     Route: 048
  3. VALIUM [Suspect]
     Active Substance: DIAZEPAM
     Indication: PRODUCT USED FOR UNKNOWN INDICATION
     Route: 048
  4. ISONIAZIDE [Suspect]
     Active Substance: ISONIAZID
     Indication: TUBERCULOSIS
     Route: 065
     Dates: start: 20161123
  5. VALIUM [Suspect]
     Active Substance: DIAZEPAM
     Route: 048

REACTIONS (1)
  - Seizure [Recovered/Resolved]

NARRATIVE: CASE EVENT DATE: 20170303
